FAERS Safety Report 21723337 (Version 1)
Quarter: 2022Q4

REPORT INFORMATION
  Report Type: Spontaneous
  Country: CA (occurrence: CA)
  Receive Date: 20221213
  Receipt Date: 20221213
  Transmission Date: 20230112
  Serious: Yes (Death)
  Sender: FDA-Public Use
  Company Number: CA-PFIZER INC-PV202200110734

PATIENT
  Age: 56 Year
  Sex: Female

DRUGS (1)
  1. ZIRABEV [Suspect]
     Active Substance: BEVACIZUMAB-BVZR
     Indication: Glioblastoma
     Dosage: 10 MG/KG (938 MG), EVERY 14 DAYS

REACTIONS (1)
  - Death [Fatal]
